FAERS Safety Report 8356147-0 (Version None)
Quarter: 2012Q1

REPORT INFORMATION
  Report Type: 
  Country: None (occurrence: None)
  Receive Date: 20120315
  Receipt Date: 20110321
  Transmission Date: 20120608
  Serious: No
  Sender: FDA-Public Use
  Company Number: PHHY2011US20100

PATIENT
  Age: 36 Year
  Sex: Female
  Weight: 64 kg

DRUGS (7)
  1. CLONAZEPAM [Concomitant]
  2. LEXAPRO [Concomitant]
  3. ANTICOAGULANTS [Concomitant]
  4. GILENYA [Suspect]
     Indication: MULTIPLE SCLEROSIS
     Dosage: 0.5 MG, QD, ORAL
     Route: 048
     Dates: start: 20110303
  5. BACLOFEN [Concomitant]
  6. PROVIGIL [Concomitant]
  7. HYDROCODONE BITARTRATE [Concomitant]

REACTIONS (6)
  - GAIT DISTURBANCE [None]
  - JOINT INJURY [None]
  - MYALGIA [None]
  - TREMOR [None]
  - FALL [None]
  - MUSCULAR WEAKNESS [None]
